FAERS Safety Report 23620834 (Version 2)
Quarter: 2024Q3

REPORT INFORMATION
  Report Type: Spontaneous
  Country: FR (occurrence: FR)
  Receive Date: 20240312
  Receipt Date: 20240811
  Transmission Date: 20241016
  Serious: Yes (Hospitalization)
  Sender: AUROBINDO
  Company Number: FR-AFSSAPS-RE2024000206

PATIENT
  Age: 69 Year
  Sex: Male

DRUGS (4)
  1. QUETIAPINE [Suspect]
     Active Substance: QUETIAPINE
     Indication: Depression
     Dosage: 50 MILLIGRAM
     Route: 048
     Dates: start: 20240111
  2. DIAZEPAM [Concomitant]
     Active Substance: DIAZEPAM
     Indication: Product used for unknown indication
     Dosage: UNK
     Route: 065
  3. VALPROATE SODIUM [Concomitant]
     Active Substance: VALPROATE SODIUM
     Indication: Product used for unknown indication
     Dosage: UNK
     Route: 065
  4. ZOPICLONE [Concomitant]
     Active Substance: ZOPICLONE
     Indication: Product used for unknown indication
     Dosage: UNK
     Route: 065

REACTIONS (1)
  - Oesophagitis [Recovered/Resolved]

NARRATIVE: CASE EVENT DATE: 20240201
